FAERS Safety Report 6802678-1 (Version None)
Quarter: 2010Q2

REPORT INFORMATION
  Report Type: 
  Country: None (occurrence: None)
  Receive Date: 20100628
  Receipt Date: 20100614
  Transmission Date: 20101027
  Serious: Yes (Other)
  Sender: FDA-Public Use
  Company Number: PHHY2010US23503

PATIENT
  Age: 60 Year
  Sex: Female
  Weight: 71.655 kg

DRUGS (2)
  1. TASIGNA [Suspect]
     Indication: CHRONIC MYELOID LEUKAEMIA
     Dosage: 400 MG, BID
     Route: 048
     Dates: start: 20100316, end: 20100406
  2. TASIGNA [Suspect]
     Dosage: 400 MG, Q12H
     Route: 048
     Dates: start: 20100318, end: 20100326

REACTIONS (2)
  - ELECTROCARDIOGRAM QT PROLONGED [None]
  - RASH [None]
